FAERS Safety Report 8049455-4 (Version None)
Quarter: 2012Q1

REPORT INFORMATION
  Report Type: 
  Country: None (occurrence: None)
  Receive Date: 20120117
  Receipt Date: 20120112
  Transmission Date: 20120608
  Serious: Yes (Other)
  Sender: FDA-Public Use
  Company Number: US-PFIZER INC-2012010004

PATIENT
  Sex: Female

DRUGS (1)
  1. PREMARIN [Suspect]
     Dosage: UNK

REACTIONS (8)
  - LOSS OF CONTROL OF LEGS [None]
  - PANCREATIC DISORDER [None]
  - INFECTION [None]
  - ATRIAL FIBRILLATION [None]
  - ASTHMA [None]
  - THYROID DISORDER [None]
  - CARDIAC OPERATION [None]
  - CHRONIC OBSTRUCTIVE PULMONARY DISEASE [None]
